FAERS Safety Report 14093182 (Version 10)
Quarter: 2018Q2

REPORT INFORMATION
  Report Type: Spontaneous
  Country: IT (occurrence: IT)
  Receive Date: 20171016
  Receipt Date: 20180416
  Transmission Date: 20180711
  Serious: Yes (Hospitalization)
  Sender: FDA-Public Use
  Company Number: IT-PFIZER INC-2017442498

PATIENT
  Age: 65 Year
  Sex: Female

DRUGS (8)
  1. PACLITAXEL. [Suspect]
     Active Substance: PACLITAXEL
     Indication: OVARIAN CANCER
     Dosage: 270 MG, CYCLIC
     Route: 041
     Dates: start: 20170508, end: 20170825
  2. AVASTIN [Suspect]
     Active Substance: BEVACIZUMAB
     Indication: OVARIAN CANCER
     Dosage: 825 MG, CYCLIC
     Route: 042
     Dates: start: 20170508, end: 20170825
  3. AVASTIN [Suspect]
     Active Substance: BEVACIZUMAB
     Dosage: 825 MG, CYCLIC / 1 X 400 MG VIAL
     Route: 042
     Dates: start: 20170530, end: 20170825
  4. LONQUEX [Concomitant]
     Active Substance: LIPEGFILGRASTIM
     Dosage: UNK
     Route: 058
  5. CARBOPLATIN. [Suspect]
     Active Substance: CARBOPLATIN
     Indication: OVARIAN CANCER
     Dosage: 580 MG, CYCLIC
     Route: 041
     Dates: start: 20170508, end: 20170825
  6. DECADRON [Concomitant]
     Active Substance: DEXAMETHASONE
     Dosage: UNK
     Route: 065
     Dates: start: 20170508, end: 20170825
  7. ZOFRAN [Concomitant]
     Active Substance: ONDANSETRON HYDROCHLORIDE
     Dosage: UNK
     Route: 042
     Dates: start: 20170508, end: 20170825
  8. TIROSINT [Concomitant]
     Active Substance: LEVOTHYROXINE SODIUM
     Dosage: 100 MG, UNK/ 100 MICROGRAMS/ML ORAL DROPS SOLUTION 20 ML BOTTLE
     Route: 048

REACTIONS (2)
  - Venous thrombosis [Recovered/Resolved]
  - Embolism venous [Unknown]

NARRATIVE: CASE EVENT DATE: 20170825
